FAERS Safety Report 5669978-2 (Version None)
Quarter: 2008Q1

REPORT INFORMATION
  Report Type: 
  Country: None (occurrence: None)
  Receive Date: 20080312
  Receipt Date: 20080225
  Transmission Date: 20080703
  Serious: Yes (Hospitalization)
  Sender: FDA-Public Use
  Company Number: 2007JP000372

PATIENT
  Age: 1 Year
  Sex: Female

DRUGS (2)
  1. PROGRAF [Suspect]
     Indication: LIVER TRANSPLANT
     Dosage: 0.8  MG, ORAL, 1.6 MG, ORAL
     Route: 048
     Dates: start: 20070116, end: 20070117
  2. PROGRAF [Suspect]
     Indication: LIVER TRANSPLANT
     Dosage: 0.8  MG, ORAL, 1.6 MG, ORAL
     Route: 048
     Dates: start: 20070118, end: 20070122

REACTIONS (2)
  - CONVULSION [None]
  - TOXIC ENCEPHALOPATHY [None]
